FAERS Safety Report 6727351-X (Version None)
Quarter: 2010Q2

REPORT INFORMATION
  Report Type: 
  Country: None (occurrence: None)
  Receive Date: 20100517
  Receipt Date: 20100503
  Transmission Date: 20101027
  Serious: Yes (Other)
  Sender: FDA-Public Use
  Company Number: PHHY2010AU28196

PATIENT
  Sex: Female

DRUGS (3)
  1. LAMISIL [Suspect]
     Dosage: 250 MG, BID
     Route: 048
     Dates: start: 20100409
  2. RANITIDINE HYDROCHLORIDE [Concomitant]
     Dosage: 300 MG, PER DAY
  3. AMITRIPTYLINE HYDROCHLORIDE [Concomitant]
     Dosage: 10 MG, QD

REACTIONS (4)
  - DRUG DISPENSING ERROR [None]
  - DRUG PRESCRIBING ERROR [None]
  - MIGRAINE [None]
  - PAIN [None]
